FAERS Safety Report 20796746 (Version 2)
Quarter: 2022Q2

REPORT INFORMATION
  Report Type: Report from Study
  Country: CN (occurrence: CN)
  Receive Date: 20220506
  Receipt Date: 20220519
  Transmission Date: 20220720
  Serious: Yes (Hospitalization)
  Sender: FDA-Public Use
  Company Number: CN-GILEAD-2022-0580094

PATIENT
  Age: 79 Year
  Sex: Male
  Weight: 71 kg

DRUGS (10)
  1. SACITUZUMAB GOVITECAN [Suspect]
     Active Substance: SACITUZUMAB GOVITECAN
     Indication: Transitional cell carcinoma
     Dosage: 730 MG, C1.C8 EVERY THREE WEEKS
     Route: 042
     Dates: start: 20220418, end: 20220425
  2. PHENERGAN [Concomitant]
     Active Substance: PROMETHAZINE HYDROCHLORIDE
     Indication: Hypersensitivity
     Dosage: UNK
     Dates: start: 20220430, end: 20220430
  3. SUCCINYLCHOLINE CHLORIDE [Concomitant]
     Active Substance: SUCCINYLCHOLINE CHLORIDE
     Indication: Blood disorder
     Dosage: UNK
     Dates: start: 20220430, end: 20220430
  4. CILASTATIN SODIUM\IMIPENEM [Concomitant]
     Active Substance: CILASTATIN SODIUM\IMIPENEM
     Indication: Infection
     Dosage: UNK
     Dates: start: 20220430
  5. GELIFEN [Concomitant]
     Indication: White blood cell count increased
     Dosage: UNK
     Dates: start: 20220430
  6. DEXTROSE\SODIUM CHLORIDE [Concomitant]
     Active Substance: DEXTROSE\SODIUM CHLORIDE
     Indication: Electrolyte substitution therapy
     Dosage: UNK
     Dates: start: 20220501, end: 20220501
  7. AMOBARBITAL [Concomitant]
     Active Substance: AMOBARBITAL
     Indication: Pyrexia
     Dosage: UNK
     Dates: start: 20220501, end: 20220501
  8. VITAMIN C+GLUCOS [Concomitant]
     Indication: Electrolyte substitution therapy
     Dosage: UNK
     Dates: start: 20220501
  9. SODIUM CHLORIDE [Concomitant]
     Active Substance: SODIUM CHLORIDE
     Indication: Gastric disorder
     Dosage: UNK
     Dates: start: 20220501
  10. SODIUM CHLORIDE [Concomitant]
     Active Substance: SODIUM CHLORIDE
     Dosage: 0.9% 100ML

REACTIONS (1)
  - Myelosuppression [Recovered/Resolved]

NARRATIVE: CASE EVENT DATE: 20220429
